FAERS Safety Report 7498957-8 (Version None)
Quarter: 2011Q2

REPORT INFORMATION
  Report Type: 
  Country: None (occurrence: None)
  Receive Date: 20110524
  Receipt Date: 20110512
  Transmission Date: 20111010
  Serious: Yes (Other)
  Sender: FDA-Public Use
  Company Number: AU-ELI_LILLY_AND_COMPANY-AU201101005418

PATIENT
  Sex: Female

DRUGS (4)
  1. FORTEO [Suspect]
     Indication: OSTEOPOROSIS
     Dosage: UNK, DAILY (1/D)
     Dates: start: 20100621
  2. ANTIHISTAMINES [Concomitant]
  3. PANADOL [Concomitant]
  4. SERETIDE [Concomitant]

REACTIONS (5)
  - PRURITUS [None]
  - SEBORRHOEIC KERATOSIS [None]
  - OSTEOMA CUTIS [None]
  - BLISTER [None]
  - KERATOACANTHOMA [None]
